FAERS Safety Report 7969123-4 (Version None)
Quarter: 2011Q4

REPORT INFORMATION
  Report Type: 
  Country: None (occurrence: None)
  Receive Date: 20111208
  Receipt Date: 20111124
  Transmission Date: 20120403
  Serious: Yes (Hospitalization)
  Sender: FDA-Public Use
  Company Number: USA/USA/11/0022195

PATIENT
  Age: 65 Year
  Sex: Female

DRUGS (5)
  1. PREDNISONE TAB [Concomitant]
  2. HYDROXYCUT (HYDROXYCUT) [Suspect]
     Indication: WEIGHT INCREASED
  3. CITALOPRAM HYDROBROMIDE [Suspect]
     Indication: DEPRESSION
     Dosage: 20 MG, 1 D
  4. SIMVASTATIN [Concomitant]
  5. LISINOPRIL [Concomitant]

REACTIONS (11)
  - DRUG INTERACTION [None]
  - PHOTOPHOBIA [None]
  - HYPOTENSION [None]
  - MUSCULAR WEAKNESS [None]
  - VISUAL FIELD DEFECT [None]
  - HEADACHE [None]
  - CEREBRAL VASOCONSTRICTION [None]
  - HYPERACUSIS [None]
  - BLOOD CHOLESTEROL INCREASED [None]
  - NAUSEA [None]
  - CEREBRAL INFARCTION [None]
